FAERS Safety Report 23443569 (Version 3)
Quarter: 2024Q3

REPORT INFORMATION
  Report Type: Report from Study
  Country: US (occurrence: US)
  Receive Date: 20240125
  Receipt Date: 20240912
  Transmission Date: 20241017
  Serious: No
  Sender: MYLAN
  Company Number: US-MYLANLABS-2024M1005696

PATIENT
  Sex: Female

DRUGS (1)
  1. TYRVAYA [Suspect]
     Active Substance: VARENICLINE TARTRATE
     Indication: Dry eye
     Dosage: 0.03 MILLIGRAM, QD (ONCE A DAY)
     Route: 045

REACTIONS (4)
  - Epistaxis [Unknown]
  - Off label use [Unknown]
  - Product delivery mechanism issue [Unknown]
  - Product lot number issue [Unknown]
